FAERS Safety Report 8920617 (Version 1)
Quarter: 2012Q4

REPORT INFORMATION
  Report Type: 
  Country: JP (occurrence: JP)
  Receive Date: 20121121
  Receipt Date: 20121121
  Transmission Date: 20130627
  Serious: Yes (Other)
  Sender: FDA-Public Use
  Company Number: JP-B.I. PHARMACEUTICALS,INC./RIDGEFIELD-2012-BI-00725NB

PATIENT
  Age: 69 Year
  Sex: Female

DRUGS (4)
  1. SIFROL [Suspect]
     Indication: PARKINSON^S DISEASE
     Route: 048
  2. MENESIT [Concomitant]
     Indication: PARKINSON^S DISEASE
     Route: 048
  3. COMTAN [Concomitant]
     Indication: PARKINSON^S DISEASE
     Route: 048
  4. ADRENAL HORMONE PREPARATIONS [Concomitant]
     Indication: COLLAGEN DISORDER
     Route: 048

REACTIONS (1)
  - Temporal lobe epilepsy [Unknown]
